FAERS Safety Report 21784306 (Version 1)
Quarter: 2022Q4

REPORT INFORMATION
  Report Type: Spontaneous
  Country: FR (occurrence: FR)
  Receive Date: 20221227
  Receipt Date: 20221227
  Transmission Date: 20230113
  Serious: Yes (Death, Hospitalization, Other)
  Sender: FDA-Public Use
  Company Number: FR-BAYER-2022A175032

PATIENT
  Age: 66 Year
  Sex: Female

DRUGS (32)
  1. VITRAKVI [Suspect]
     Active Substance: LAROTRECTINIB
     Indication: Lung adenocarcinoma
     Dosage: 100 MG, BID
     Dates: start: 20220304, end: 20220410
  2. VITRAKVI [Suspect]
     Active Substance: LAROTRECTINIB
     Indication: Lung adenocarcinoma
     Dosage: 100 MG, BID
     Dates: start: 20220427, end: 20220427
  3. VITRAKVI [Suspect]
     Active Substance: LAROTRECTINIB
     Indication: Lung adenocarcinoma
     Dosage: 25 MG, QD
     Route: 048
     Dates: start: 20220920, end: 20220920
  4. VITRAKVI [Suspect]
     Active Substance: LAROTRECTINIB
     Indication: Lung adenocarcinoma
     Dosage: 25 MG, BID
     Route: 048
     Dates: start: 20220921, end: 20220927
  5. VITRAKVI [Suspect]
     Active Substance: LAROTRECTINIB
     Indication: Lung adenocarcinoma
     Dosage: 25 MG, QD
     Route: 048
     Dates: start: 20221003, end: 20221003
  6. VITRAKVI [Suspect]
     Active Substance: LAROTRECTINIB
     Indication: Lung adenocarcinoma
     Dosage: 25 MG, QD IN THE EVENING
     Route: 048
     Dates: start: 20221004, end: 20221004
  7. VITRAKVI [Suspect]
     Active Substance: LAROTRECTINIB
     Indication: Lung adenocarcinoma
     Dosage: 25 MG, QD AT MIDDAY
     Route: 048
     Dates: start: 20221004, end: 20221014
  8. VITRAKVI [Suspect]
     Active Substance: LAROTRECTINIB
     Indication: Lung adenocarcinoma
     Dosage: 25 MG, QD AT MIDDAY
     Route: 048
     Dates: start: 20221022, end: 20221028
  9. VITRAKVI [Suspect]
     Active Substance: LAROTRECTINIB
     Indication: Lung adenocarcinoma
     Dosage: 25 MG, QD AT MIDDAY
     Route: 048
     Dates: start: 20221116, end: 20221119
  10. HALDOL [Concomitant]
     Active Substance: HALOPERIDOL
     Indication: Agitation
     Dosage: 5 UNK
     Route: 042
     Dates: start: 20220422
  11. HALDOL [Concomitant]
     Active Substance: HALOPERIDOL
     Indication: Persecutory delusion
     Dosage: 10 DROP, QD, 2 MG/ML
     Route: 048
     Dates: start: 20221110, end: 20221114
  12. ATENOLOL [Concomitant]
     Active Substance: ATENOLOL
     Dosage: 0.5 TO 1 TABLET PER DAY AS NEEDED
     Route: 048
     Dates: start: 20220421
  13. ATENOLOL [Concomitant]
     Active Substance: ATENOLOL
     Dosage: 25 MG, OM
     Route: 048
     Dates: start: 20220912, end: 20221028
  14. ATENOLOL [Concomitant]
     Active Substance: ATENOLOL
     Dosage: 25 MG, OM
     Route: 048
     Dates: start: 20221110, end: 20221119
  15. EXFORGE [Concomitant]
     Active Substance: AMLODIPINE BESYLATE\VALSARTAN
     Dosage: 10MG/160MG, 1 TABLET IN MORNING
     Route: 048
     Dates: start: 20220408, end: 20220409
  16. EXFORGE [Concomitant]
     Active Substance: AMLODIPINE BESYLATE\VALSARTAN
     Dosage: 10MG/160MG, 1 TABLET IN MORNING
     Route: 048
     Dates: start: 20220420
  17. EXFORGE [Concomitant]
     Active Substance: AMLODIPINE BESYLATE\VALSARTAN
     Dosage: 10MG/160MG, 1 TABLET IN MORNING
     Route: 048
     Dates: start: 20221110, end: 20221114
  18. OXAZEPAM [Concomitant]
     Active Substance: OXAZEPAM
     Dosage: 1 DF, TID
     Route: 048
     Dates: start: 20220420
  19. OXAZEPAM [Concomitant]
     Active Substance: OXAZEPAM
     Dosage: 1 TO 3 TABLETS, QD, IF NECESSARY
     Route: 048
     Dates: start: 20220912, end: 20221018
  20. OXAZEPAM [Concomitant]
     Active Substance: OXAZEPAM
     Dosage: 10 MG, BID
     Route: 048
     Dates: start: 20221020, end: 20221028
  21. OXAZEPAM [Concomitant]
     Active Substance: OXAZEPAM
     Dosage: 10 MG, QD IF NEEDED
     Route: 048
     Dates: start: 20221110, end: 20221119
  22. OXAZEPAM [Concomitant]
     Active Substance: OXAZEPAM
     Dosage: 10 UNK
     Route: 048
     Dates: start: 20220912, end: 20221018
  23. INNOHEP [Concomitant]
     Active Substance: TINZAPARIN SODIUM
     Dosage: UNK IU
     Route: 058
     Dates: start: 20220408
  24. INNOHEP [Concomitant]
     Active Substance: TINZAPARIN SODIUM
     Dosage: 10000 IU, QD
     Route: 058
     Dates: start: 20221008, end: 20221028
  25. INNOHEP [Concomitant]
     Active Substance: TINZAPARIN SODIUM
     Dosage: 10000 IU, QD
     Route: 058
     Dates: start: 20221110, end: 20221110
  26. INNOHEP [Concomitant]
     Active Substance: TINZAPARIN SODIUM
     Dosage: 10000 IU, QD
     Route: 058
     Dates: start: 20221110, end: 20221114
  27. ALBUTEROL SULFATE [Concomitant]
     Active Substance: ALBUTEROL SULFATE
     Dosage: UNK
     Route: 055
     Dates: start: 20220408, end: 20220410
  28. ALBUTEROL SULFATE [Concomitant]
     Active Substance: ALBUTEROL SULFATE
     Dosage: 4 TIMES DAILY
     Route: 055
     Dates: start: 20220420
  29. ALBUTEROL SULFATE [Concomitant]
     Active Substance: ALBUTEROL SULFATE
     Dosage: 5 MG, 1 TO 3 SINGLE-DOSE CONTAINERS PER DAY IF NECESSARY
     Route: 055
     Dates: start: 20221021, end: 20221028
  30. PANTOPRAZOLE [Concomitant]
     Active Substance: PANTOPRAZOLE
     Dosage: 1 TABLET IN EVENING
     Route: 048
  31. PANTOPRAZOLE [Concomitant]
     Active Substance: PANTOPRAZOLE
     Dosage: 20 MG, QD
     Route: 048
     Dates: start: 20220912, end: 20221028
  32. PANTOPRAZOLE [Concomitant]
     Active Substance: PANTOPRAZOLE
     Dosage: 20 MG, QD
     Route: 048
     Dates: start: 20221110, end: 20221119

REACTIONS (10)
  - Lung adenocarcinoma [Fatal]
  - Respiratory tract infection [Fatal]
  - Fall [None]
  - Wrist fracture [None]
  - Acute kidney injury [None]
  - Rhabdomyolysis [None]
  - Lung disorder [None]
  - Pseudomonas infection [None]
  - Respiratory distress [None]
  - Hypercapnic coma [None]

NARRATIVE: CASE EVENT DATE: 20221101
